FAERS Safety Report 5900185-1 (Version None)
Quarter: 2008Q3

REPORT INFORMATION
  Report Type: 
  Country: None (occurrence: None)
  Receive Date: 20080924
  Receipt Date: 20080908
  Transmission Date: 20090109
  Serious: Yes (Other)
  Sender: FDA-Public Use
  Company Number: 8037108

PATIENT
  Age: 4 Year
  Sex: Male

DRUGS (1)
  1. PREDNISOLONE [Suspect]
     Indication: DERMATITIS EXFOLIATIVE
     Dosage: 10 MG /D PO
     Route: 048

REACTIONS (1)
  - LICHENOID KERATOSIS [None]
